FAERS Safety Report 5312852-1 (Version None)
Quarter: 2007Q1

REPORT INFORMATION
  Report Type: 
  Country: None (occurrence: None)
  Receive Date: 20070201
  Receipt Date: 20061204
  Transmission Date: 20070707
  Serious: No
  Sender: FDA-Public Use
  Company Number: 259166

PATIENT
  Age: 67 Year
  Sex: Male
  Weight: 108.8 kg

DRUGS (9)
  1. LEVEMIR [Suspect]
     Indication: DIABETES MELLITUS NON-INSULIN-DEPENDENT
     Dosage: 22 IU, QD, SUBCUTANEOUS
     Route: 058
     Dates: start: 20061001
  2. LEVEMIR [Suspect]
     Indication: INSULIN-REQUIRING TYPE II DIABETES MELLITUS
     Dosage: 22 IU, QD, SUBCUTANEOUS
     Route: 058
     Dates: start: 20061001
  3. LIPITOR [Concomitant]
  4. ZETIA [Concomitant]
  5. METFORMIN HCL [Concomitant]
  6. ATENOLOL [Concomitant]
  7. PLAVIX [Concomitant]
  8. GLIMEPIRIDE [Concomitant]
  9. QUINAPRIL HCL [Concomitant]

REACTIONS (1)
  - OEDEMA PERIPHERAL [None]
